FAERS Safety Report 19241520 (Version 2)
Quarter: 2021Q2

REPORT INFORMATION
  Report Type: Spontaneous
  Country: US (occurrence: US)
  Receive Date: 20210511
  Receipt Date: 20210511
  Transmission Date: 20210717
  Serious: No
  Sender: FDA-Public Use
  Company Number: US-SA-2021SA143358

PATIENT
  Sex: Female

DRUGS (1)
  1. SOLIQUA 100/33 [Suspect]
     Active Substance: INSULIN GLARGINE\LIXISENATIDE
     Indication: DIABETES MELLITUS
     Dosage: 40 IU, QD
     Route: 065
     Dates: start: 202103

REACTIONS (8)
  - Irritability [Recovered/Resolved]
  - Frustration tolerance decreased [Recovered/Resolved]
  - Crying [Recovered/Resolved]
  - Hypophagia [Recovered/Resolved]
  - Blood glucose increased [Recovered/Resolved]
  - Injection site extravasation [Recovered/Resolved]
  - Incorrect drug administration rate [Unknown]
  - Incorrect dose administered [Recovered/Resolved]
